FAERS Safety Report 25969885 (Version 3)
Quarter: 2025Q4

REPORT INFORMATION
  Report Type: Spontaneous
  Country: EU (occurrence: EU)
  Receive Date: 20251028
  Receipt Date: 20251105
  Transmission Date: 20260118
  Serious: Yes (Death, Hospitalization)
  Sender: MERCK SHARP & DOHME LLC
  Company Number: EU-009507513-2338362

PATIENT
  Age: 72 Year
  Sex: Female
  Weight: 56 kg

DRUGS (4)
  1. SOTATERCEPT [Suspect]
     Active Substance: SOTATERCEPT
     Indication: Pulmonary arterial hypertension
     Dosage: TIME INTERVAL: TOTAL: INITIATION DOSE 0.3 MG/KG, THEN CONTINUED WITH 0.7 MG/KG EVERY 3 WEEKS
     Route: 058
  2. SOTATERCEPT [Suspect]
     Active Substance: SOTATERCEPT
     Dosage: 0.7 MG/KG EVERY 3 WEEKS
     Route: 058
     Dates: start: 20250707
  3. SOTATERCEPT [Suspect]
     Active Substance: SOTATERCEPT
  4. SOTATERCEPT [Suspect]
     Active Substance: SOTATERCEPT

REACTIONS (3)
  - Death [Fatal]
  - Electrolyte imbalance [Not Recovered/Not Resolved]
  - Acute pulmonary oedema [Not Recovered/Not Resolved]

NARRATIVE: CASE EVENT DATE: 20251028
